FAERS Safety Report 19026451 (Version 1)
Quarter: 2021Q1

REPORT INFORMATION
  Report Type: Spontaneous
  Country: TW (occurrence: TW)
  Receive Date: 20210318
  Receipt Date: 20210318
  Transmission Date: 20210420
  Serious: Yes (Hospitalization)
  Sender: FDA-Public Use
  Company Number: NVSC2021TW047440

PATIENT
  Age: 73 Year
  Sex: Female
  Weight: 72.1 kg

DRUGS (1)
  1. TEGRETOL XR [Suspect]
     Active Substance: CARBAMAZEPINE
     Indication: HYPOAESTHESIA
     Dosage: 1 DF, BID
     Route: 048
     Dates: start: 20180116, end: 20180212

REACTIONS (10)
  - Skin exfoliation [Recovering/Resolving]
  - Urinary tract infection [Recovering/Resolving]
  - Genital rash [Recovering/Resolving]
  - Rash [Recovering/Resolving]
  - Pyrexia [Recovering/Resolving]
  - Rash erythematous [Recovering/Resolving]
  - Mouth ulceration [Recovering/Resolving]
  - Urticaria [Recovering/Resolving]
  - Stevens-Johnson syndrome [Recovering/Resolving]
  - Oral mucosal eruption [Recovering/Resolving]

NARRATIVE: CASE EVENT DATE: 20180213
